FAERS Safety Report 8444075-1 (Version None)
Quarter: 2012Q2

REPORT INFORMATION
  Report Type: 
  Country: None (occurrence: None)
  Receive Date: 20120618
  Receipt Date: 20120613
  Transmission Date: 20120825
  Serious: Yes (Death, Hospitalization)
  Sender: FDA-Public Use
  Company Number: PHHY2012BR020897

PATIENT
  Sex: Female

DRUGS (12)
  1. MANTIDAN [Concomitant]
     Indication: PARKINSON'S DISEASE
     Dosage: UNK
     Route: 048
     Dates: end: 20120101
  2. FLUOXETINE [Concomitant]
     Indication: DEPRESSION
     Dosage: 1 DF, QD IN THE MORNING
     Route: 048
     Dates: end: 20111201
  3. CLOZAPINE [Concomitant]
     Indication: AGITATION
     Dosage: 1 DF, QD
     Route: 048
  4. EXELON [Suspect]
     Indication: PARKINSON'S DISEASE
     Dosage: 9.5 MG / 24 HOURS (18 MG/ 10 CM2)
     Route: 062
     Dates: start: 20090101, end: 20100101
  5. LEVODOPA [Concomitant]
     Dosage: 1 TABLET AT MORNING AND FROM MIDDAY TO 18 HOURS HALF TABLET EVERY 2 HR.
  6. REGULAR INSULIN [Concomitant]
     Indication: DIABETES MELLITUS
     Dosage: IN THE MORNING
     Dates: start: 19700101
  7. ENALAPRIL [Concomitant]
     Indication: BLOOD PRESSURE
     Dosage: 2 DF, QD
     Route: 048
     Dates: end: 20111201
  8. NPH INSULIN [Concomitant]
     Indication: DIABETES MELLITUS
     Dosage: IN THE MORNING
     Dates: start: 19700101
  9. TRAZODONE HCL [Concomitant]
     Indication: SLEEP DISORDER
     Dosage: 1 DF, QD
     Dates: end: 20111201
  10. METFORMIN HCL [Concomitant]
     Dosage: 1 DF, QD
  11. CARBIDOPA + LEVODOPA [Concomitant]
     Indication: PARKINSON'S DISEASE
     Dosage: 1 TABLET IN THE MORNING, ? TABLET AT 10 AM, ? TABLET AT 12 PM, ? TABLET AT 2 PM AND 1 TABLET AT 7 PM
     Route: 048
  12. EXELON [Suspect]
     Dosage: 9.5 MG / 24 HOURS (18 MG/ 10 CM2)
     Route: 062
     Dates: start: 20110101, end: 20111201

REACTIONS (10)
  - WRONG TECHNIQUE IN DRUG USAGE PROCESS [None]
  - SEPSIS [None]
  - NECK PAIN [None]
  - GASTROENTERITIS [None]
  - HYPOGLYCAEMIA [None]
  - CEREBRAL INFARCTION [None]
  - CONFUSIONAL STATE [None]
  - URINARY TRACT INFECTION [None]
  - AGITATION [None]
  - POOR QUALITY SLEEP [None]
